FAERS Safety Report 4323689-4 (Version None)
Quarter: 2004Q1

REPORT INFORMATION
  Report Type: 
  Country: None (occurrence: None)
  Receive Date: 20040322
  Receipt Date: 20040301
  Transmission Date: 20041129
  Serious: Yes (Death, Other)
  Sender: FDA-Public Use
  Company Number: B0326322A

PATIENT

DRUGS (7)
  1. ALKERAN [Suspect]
     Indication: MULTIPLE MYELOMA
     Dosage: CYCLIC
  2. DOXORUBICIN HYDROCHLORIDE [Suspect]
     Indication: MULTIPLE MYELOMA
     Dosage: CYCLIC
  3. VINCRISTINE [Suspect]
     Indication: MULTIPLE MYELOMA
     Dosage: CYCLIC
  4. DEXAMETHASONE [Suspect]
     Indication: MULTIPLE MYELOMA
     Dosage: CYCLIC
  5. CYCLOPHOSPHAMIDE [Suspect]
     Indication: MULTIPLE MYELOMA
     Dosage: CYCLIC
  6. STEM CELL TRANSPLANT [Suspect]
  7. GRANULOCYTE COL.STIM.FACT [Concomitant]

REACTIONS (2)
  - DRUG TOXICITY [None]
  - PNEUMONIA [None]
